FAERS Safety Report 18240344 (Version 3)
Quarter: 2022Q3

REPORT INFORMATION
  Report Type: Report from Study
  Country: US (occurrence: US)
  Receive Date: 20200908
  Receipt Date: 20220824
  Transmission Date: 20221027
  Serious: Yes (Death, Hospitalization, Other)
  Sender: FDA-Public Use
  Company Number: US-ABBVIE-20K-163-3553979-00

PATIENT
  Age: 68 Year
  Sex: Male

DRUGS (5)
  1. IMBRUVICA [Suspect]
     Active Substance: IBRUTINIB
     Indication: B-cell small lymphocytic lymphoma
     Route: 048
  2. IMBRUVICA [Suspect]
     Active Substance: IBRUTINIB
     Indication: Neoplasm malignant
     Route: 048
     Dates: end: 201804
  3. IMBRUVICA [Suspect]
     Active Substance: IBRUTINIB
     Route: 048
     Dates: start: 201805
  4. IMBRUVICA [Suspect]
     Active Substance: IBRUTINIB
     Route: 048
     Dates: end: 202010
  5. IMBRUVICA [Suspect]
     Active Substance: IBRUTINIB
     Indication: B-cell small lymphocytic lymphoma
     Route: 048
     Dates: start: 20170125, end: 20180418

REACTIONS (10)
  - Death [Fatal]
  - Pleural effusion [Unknown]
  - Malignant neoplasm progression [Not Recovered/Not Resolved]
  - Neoplasm malignant [Unknown]
  - Heart rate increased [Unknown]
  - Feeling abnormal [Unknown]
  - Drug ineffective [Unknown]
  - Fatigue [Unknown]
  - Weight decreased [Unknown]
  - Dyspnoea [Unknown]

NARRATIVE: CASE EVENT DATE: 20200801
